FAERS Safety Report 17429300 (Version 3)
Quarter: 2020Q3

REPORT INFORMATION
  Report Type: Spontaneous
  Country: US (occurrence: US)
  Receive Date: 20200218
  Receipt Date: 20200819
  Transmission Date: 20201102
  Serious: No
  Sender: FDA-Public Use
  Company Number: US-JNJFOC-20200223961

PATIENT
  Age: 47 Year
  Sex: Female

DRUGS (2)
  1. STELARA [Suspect]
     Active Substance: USTEKINUMAB
     Indication: PSORIATIC ARTHROPATHY
     Route: 058
     Dates: start: 20190214, end: 20200212
  2. STELARA [Suspect]
     Active Substance: USTEKINUMAB
     Route: 058
     Dates: start: 20200212

REACTIONS (5)
  - Weight increased [Unknown]
  - Product dose omission issue [Unknown]
  - Psoriasis [Unknown]
  - Psoriasis [Unknown]
  - Syringe issue [Unknown]

NARRATIVE: CASE EVENT DATE: 201911
